FAERS Safety Report 4971815-6 (Version None)
Quarter: 2006Q2

REPORT INFORMATION
  Report Type: 
  Country: None (occurrence: None)
  Receive Date: 20060412
  Receipt Date: 20060412
  Transmission Date: 20061013
  Serious: No
  Sender: FDA-Public Use
  Company Number: None

PATIENT
  Age: 60 Year
  Sex: Female

DRUGS (1)
  1. ESTRADIOL [Suspect]
     Indication: MENOPAUSE
     Dosage: TAKE 1 TABLET THREE TIMES A DAY
     Dates: start: 19970101

REACTIONS (5)
  - BLOOD OESTROGEN DECREASED [None]
  - DISEASE RECURRENCE [None]
  - DRUG INEFFECTIVE [None]
  - MENOPAUSAL SYMPTOMS [None]
  - PHARMACEUTICAL PRODUCT COMPLAINT [None]
